FAERS Safety Report 21989427 (Version 1)
Quarter: 2023Q1

REPORT INFORMATION
  Report Type: Report from Study
  Country: US (occurrence: None)
  Receive Date: 20230214
  Receipt Date: 20230214
  Transmission Date: 20230418
  Serious: Yes (Other)
  Sender: FDA-Public Use
  Company Number: US-ROCHE-3056372

PATIENT
  Age: 65 Year
  Sex: Female

DRUGS (4)
  1. ATEZOLIZUMAB [Suspect]
     Active Substance: ATEZOLIZUMAB
     Indication: Invasive breast carcinoma
     Dosage: OVER 30-60 MINUTES ON DAY 1 OF CYCLE 1 AND DAYS 1 AND 22 OF SUBSEQUENT CYCLES.
     Route: 041
  2. PERTUZUMAB [Suspect]
     Active Substance: PERTUZUMAB
     Indication: Invasive breast carcinoma
     Dosage: LOADING DOSE FOLLOWED BY MAINTENANCE DOSE OF 420 MG
     Route: 042
  3. TRASTUZUMAB [Suspect]
     Active Substance: TRASTUZUMAB
     Indication: Invasive breast carcinoma
     Dosage: OVER 30-90 MINUTES ON DAYS 1 AND 22?LOADING DOSE FOLLOWED BY MAINTENANCE DOSE OF 6 MG.KG
     Route: 042
  4. PACLITAXEL [Suspect]
     Active Substance: PACLITAXEL
     Indication: Invasive breast carcinoma
     Route: 042

REACTIONS (1)
  - Diarrhoea [Unknown]

NARRATIVE: CASE EVENT DATE: 20200905
